FAERS Safety Report 7210493-2 (Version None)
Quarter: 2011Q1

REPORT INFORMATION
  Report Type: 
  Country: None (occurrence: None)
  Receive Date: 20110105
  Receipt Date: 20101213
  Transmission Date: 20110831
  Serious: No
  Sender: FDA-Public Use
  Company Number: US-B.I. PHARMACEUTICALS,INC./RIDGEFIELD-2010-BP-13016BP

PATIENT
  Age: 85 Year
  Sex: Female

DRUGS (7)
  1. LEVOTHROID [Concomitant]
     Dosage: 0.1 MG
  2. PRADAXA [Suspect]
     Indication: ATRIAL FIBRILLATION
     Dosage: 300 MG
     Route: 048
     Dates: start: 20101115
  3. DIAZIDE [Concomitant]
     Dosage: 375 MG
  4. BIOTIN [Concomitant]
  5. ICAPS [Concomitant]
  6. COSAMIN DS [Concomitant]
  7. CITRACAL [Concomitant]

REACTIONS (3)
  - FLATULENCE [None]
  - ABDOMINAL PAIN UPPER [None]
  - CHEST PAIN [None]
